FAERS Safety Report 4323698-5 (Version None)
Quarter: 2004Q1

REPORT INFORMATION
  Report Type: 
  Country: None (occurrence: None)
  Receive Date: 20040323
  Receipt Date: 20031119
  Transmission Date: 20041129
  Serious: Yes (Hospitalization, Other)
  Sender: FDA-Public Use
  Company Number: KII-2003-0008082

PATIENT
  Age: 44 Year
  Sex: Female

DRUGS (4)
  1. OXYCONTIN [Suspect]
  2. BENZODIAZEPINE DERIVATIVES() [Suspect]
  3. ACETYLSALICYLIC ACID SRT [Suspect]
  4. LITHIUM CARBONATE [Suspect]

REACTIONS (25)
  - ACTIVATED PARTIAL THROMBOPLASTIN TIME PROLONGED [None]
  - AGITATION [None]
  - ALCOHOL POISONING [None]
  - ALCOHOL WITHDRAWAL SYNDROME [None]
  - ANAEMIA MACROCYTIC [None]
  - ANION GAP ABNORMAL [None]
  - ASPARTATE AMINOTRANSFERASE INCREASED [None]
  - BLOOD ALBUMIN DECREASED [None]
  - BLOOD CREATINE INCREASED [None]
  - BLOOD GLUCOSE INCREASED [None]
  - BLOOD POTASSIUM DECREASED [None]
  - BODY TEMPERATURE DECREASED [None]
  - COMA [None]
  - CONFUSIONAL STATE [None]
  - CRACKLES LUNG [None]
  - DIALYSIS [None]
  - HEART RATE INCREASED [None]
  - LIVER FUNCTION TEST ABNORMAL [None]
  - METABOLIC ACIDOSIS [None]
  - MULTIPLE DRUG OVERDOSE [None]
  - PYREXIA [None]
  - RESPIRATORY ARREST [None]
  - RESTLESSNESS [None]
  - URINE ANALYSIS ABNORMAL [None]
  - VOMITING [None]
